FAERS Safety Report 16881307 (Version 1)
Quarter: 2019Q4

REPORT INFORMATION
  Report Type: Spontaneous
  Country: CA (occurrence: CA)
  Receive Date: 20191003
  Receipt Date: 20191003
  Transmission Date: 20200122
  Serious: Yes (Death)
  Sender: FDA-Public Use
  Company Number: CA-HLSUS-2019-CA-001271

PATIENT
  Sex: Female

DRUGS (3)
  1. CLOZAPINE. [Suspect]
     Active Substance: CLOZAPINE
     Dosage: 300 MG
     Route: 065
  2. DIVALPROEX SODIUM. [Suspect]
     Active Substance: DIVALPROEX SODIUM
     Dosage: 250 MG
     Route: 065
  3. BENZTROPINE. [Suspect]
     Active Substance: BENZTROPINE
     Dosage: 3 MG
     Route: 065

REACTIONS (8)
  - Accidental exposure to product [Fatal]
  - General physical health deterioration [Fatal]
  - Toxicity to various agents [Fatal]
  - Altered state of consciousness [Fatal]
  - Cardiotoxicity [Fatal]
  - Seizure [Fatal]
  - Wrong product administered [Fatal]
  - Somnolence [Fatal]
